FAERS Safety Report 8115836-3 (Version None)
Quarter: 2012Q1

REPORT INFORMATION
  Report Type: 
  Country: None (occurrence: None)
  Receive Date: 20120206
  Receipt Date: 20120206
  Transmission Date: 20120608
  Serious: Yes (Death, Hospitalization)
  Sender: FDA-Public Use
  Company Number: JP-B.I. PHARMACEUTICALS,INC./RIDGEFIELD-2012-BP-00513NB

PATIENT
  Sex: Female
  Weight: 46.2 kg

DRUGS (13)
  1. SIGMART [Concomitant]
     Dosage: 10 MG
     Route: 048
  2. AMARYL [Concomitant]
     Dosage: 0.5 MG
     Route: 048
  3. PLAVIX [Concomitant]
     Dosage: 50 MG
     Route: 048
  4. MAGMITT [Concomitant]
     Dosage: 500 MG
     Route: 048
  5. NITOROL R [Concomitant]
     Dosage: 40 MG
     Route: 048
  6. TENORMIN [Concomitant]
     Dosage: 12.5 MG
     Route: 048
  7. OLMESARTAN MEDOXOMIL [Concomitant]
     Dosage: 20 MG
     Route: 048
  8. METHYCOBAL [Concomitant]
     Dosage: 1000 MCG
     Route: 048
  9. SPIRIVA [Suspect]
     Indication: EMPHYSEMA
     Dosage: 5 MCG
     Route: 055
     Dates: start: 20101213, end: 20110715
  10. CRESTOR [Concomitant]
     Dosage: 2.5 MG
     Route: 048
  11. ADALAT [Concomitant]
     Dosage: 20 MG
     Route: 048
  12. BASEN [Concomitant]
     Dosage: 0.6 MG
     Route: 048
  13. CALBLOCK [Concomitant]
     Dosage: 16 MG
     Route: 048

REACTIONS (3)
  - UPPER RESPIRATORY TRACT INFLAMMATION [None]
  - ELECTROLYTE IMBALANCE [None]
  - LUNG NEOPLASM MALIGNANT [None]
